FAERS Safety Report 17396438 (Version 1)
Quarter: 2020Q1

REPORT INFORMATION
  Report Type: Spontaneous
  Country: US (occurrence: US)
  Receive Date: 20200207
  Receipt Date: 20200207
  Transmission Date: 20200409
  Serious: Yes (Life-Threatening, Other)
  Sender: FDA-Public Use
  Company Number: None

PATIENT
  Age: 78 Year
  Sex: Female
  Weight: 67.5 kg

DRUGS (3)
  1. PROLIA [Suspect]
     Active Substance: DENOSUMAB
     Indication: OSTEOPOROSIS
     Route: 030
  2. VITAMIN D [Concomitant]
     Active Substance: VITAMIN D NOS
  3. MIUTIVITAMIN [Concomitant]

REACTIONS (4)
  - Oral disorder [None]
  - Headache [None]
  - Osteonecrosis of jaw [None]
  - Pain in jaw [None]

NARRATIVE: CASE EVENT DATE: 20200101
